FAERS Safety Report 10432573 (Version 1)
Quarter: 2014Q3

REPORT INFORMATION
  Report Type: Spontaneous
  Country: US (occurrence: None)
  Receive Date: 20140904
  Receipt Date: 20140904
  Transmission Date: 20150326
  Serious: No
  Sender: FDA-Public Use
  Company Number: None

PATIENT
  Sex: Female

DRUGS (1)
  1. XULANE [Suspect]
     Active Substance: ETHINYL ESTRADIOL\NORELGESTROMIN
     Indication: OVARIAN FAILURE
     Dates: start: 201406, end: 201407

REACTIONS (4)
  - Depression [None]
  - Suicidal ideation [None]
  - Anger [None]
  - Mood swings [None]
